FAERS Safety Report 8119334-2 (Version None)
Quarter: 2012Q1

REPORT INFORMATION
  Report Type: 
  Country: None (occurrence: None)
  Receive Date: 20120207
  Receipt Date: 20120123
  Transmission Date: 20120608
  Serious: No
  Sender: FDA-Public Use
  Company Number: US-BAYER-2012-012080

PATIENT
  Age: 80 Year
  Sex: Female

DRUGS (3)
  1. CIPROFLOXACIN [Suspect]
     Indication: BACTERAEMIA
     Dosage: UNK
     Route: 048
     Dates: end: 20120123
  2. CIPROFLOXACIN [Suspect]
     Dosage: UNK
     Route: 042
  3. LOSARTAN POTASSIUM [Concomitant]

REACTIONS (1)
  - SWELLING [None]
